FAERS Safety Report 9449702 (Version 1)
Quarter: 2013Q3

REPORT INFORMATION
  Report Type: Spontaneous
  Country: FR (occurrence: FR)
  Receive Date: 20130809
  Receipt Date: 20130809
  Transmission Date: 20140515
  Serious: Yes (Hospitalization)
  Sender: FDA-Public Use
  Company Number: FR-ROCHE-1258872

PATIENT
  Sex: Female

DRUGS (12)
  1. VALIUM [Suspect]
     Indication: EPILEPSY
     Route: 064
     Dates: end: 20110601
  2. RIVOTRIL [Suspect]
     Indication: EPILEPSY
     Route: 064
  3. NOCTRAN [Suspect]
     Indication: SLEEP DISORDER
     Route: 064
     Dates: end: 20110601
  4. DEPAKINE CHRONO [Suspect]
     Indication: EPILEPSY
     Dosage: 500MG
     Route: 064
     Dates: end: 20110601
  5. LOXAPAC [Suspect]
     Indication: PRODUCT USED FOR UNKNOWN INDICATION
     Route: 064
     Dates: start: 201101, end: 20110601
  6. RISPERDAL CONSTA [Suspect]
     Indication: PRODUCT USED FOR UNKNOWN INDICATION
     Dosage: 25MG/2ML PREFILLED SYRINGE
     Route: 064
     Dates: end: 20110527
  7. SULFARLEM [Suspect]
     Indication: PRODUCT USED FOR UNKNOWN INDICATION
     Route: 064
     Dates: end: 20110721
  8. LEPTICUR [Suspect]
     Indication: PRODUCT USED FOR UNKNOWN INDICATION
     Route: 064
  9. HALDOL DECANOAS [Suspect]
     Indication: PRODUCT USED FOR UNKNOWN INDICATION
     Route: 064
     Dates: start: 20110601
  10. KEPPRA [Suspect]
     Indication: PRODUCT USED FOR UNKNOWN INDICATION
     Route: 064
     Dates: start: 20110601
  11. IMOVANE [Suspect]
     Indication: PRODUCT USED FOR UNKNOWN INDICATION
     Dosage: 7.5MG
     Route: 064
     Dates: start: 20110601
  12. AEQUASYAL [Concomitant]

REACTIONS (2)
  - Cardiac murmur [Recovered/Resolved with Sequelae]
  - Maternal exposure timing unspecified [Unknown]
